FAERS Safety Report 11788350 (Version 1)
Quarter: 2015Q4

REPORT INFORMATION
  Report Type: Report from Study
  Country: US (occurrence: US)
  Receive Date: 20151201
  Receipt Date: 20151201
  Transmission Date: 20160305
  Serious: No
  Sender: FDA-Public Use
  Company Number: US-AMGEN-USASL2015125909

PATIENT
  Age: 28 Year
  Sex: Male

DRUGS (1)
  1. ENBREL [Suspect]
     Active Substance: ETANERCEPT
     Indication: ANKYLOSING SPONDYLITIS
     Dosage: UNK UNK, QWK (ONCE A WEEK)
     Route: 065

REACTIONS (7)
  - Joint dislocation [Unknown]
  - Pustular psoriasis [Unknown]
  - Nasopharyngitis [Unknown]
  - Fungal infection [Unknown]
  - Arthritis [Unknown]
  - Mobility decreased [Unknown]
  - Weight decreased [Unknown]
